FAERS Safety Report 9882139 (Version 1)
Quarter: 2014Q1

REPORT INFORMATION
  Report Type: Report from Study
  Country: LB (occurrence: LB)
  Receive Date: 20140207
  Receipt Date: 20140207
  Transmission Date: 20141002
  Serious: Yes (Death, Life-Threatening, Hospitalization)
  Sender: FDA-Public Use
  Company Number: PHHY2014LB014807

PATIENT
  Age: 82 Year
  Sex: Female

DRUGS (2)
  1. ACLASTA [Suspect]
     Dosage: UNK
     Route: 042
  2. ANTIARRHYTHMIC AGENTS [Concomitant]

REACTIONS (5)
  - Cardiac arrest [Fatal]
  - Coma [Unknown]
  - Multi-organ failure [Unknown]
  - Renal failure [Unknown]
  - Diarrhoea [Unknown]
